FAERS Safety Report 5879589-1 (Version None)
Quarter: 2008Q3

REPORT INFORMATION
  Report Type: 
  Country: None (occurrence: None)
  Receive Date: 20080912
  Receipt Date: 20080909
  Transmission Date: 20090109
  Serious: Yes (Congenital Anomaly)
  Sender: FDA-Public Use
  Company Number: DE-AVENTIS-200812398DE

PATIENT
  Age: 0 Day
  Sex: Male

DRUGS (1)
  1. ENOXAPARIN SODIUM [Suspect]
     Indication: THROMBOSIS PROPHYLAXIS
     Route: 064
     Dates: end: 20080701

REACTIONS (20)
  - ATRIAL SEPTAL DEFECT [None]
  - BLOOD PH DECREASED [None]
  - BONE DEVELOPMENT ABNORMAL [None]
  - CAESAREAN SECTION [None]
  - CHONDRODYSTROPHY [None]
  - COAGULATION DISORDER NEONATAL [None]
  - CONGENITAL BOWING OF LONG BONES [None]
  - FEEDING DISORDER NEONATAL [None]
  - FOETAL GROWTH RETARDATION [None]
  - MATERNAL DRUGS AFFECTING FOETUS [None]
  - NEONATAL ASPIRATION [None]
  - NEONATAL DISORDER [None]
  - PETECHIAE [None]
  - PLACENTAL INSUFFICIENCY [None]
  - SINGLE UMBILICAL ARTERY [None]
  - SMALL FOR DATES BABY [None]
  - TEMPERATURE REGULATION DISORDER [None]
  - THROMBOCYTOPENIA NEONATAL [None]
  - TRICUSPID VALVE INCOMPETENCE [None]
  - VENTRICULAR SEPTAL DEFECT [None]
